FAERS Safety Report 15143891 (Version 1)
Quarter: 2018Q3

REPORT INFORMATION
  Report Type: Spontaneous
  Country: US (occurrence: US)
  Receive Date: 20180713
  Receipt Date: 20180713
  Transmission Date: 20181010
  Serious: Yes (Hospitalization, Other)
  Sender: FDA-Public Use
  Company Number: US-AMGEN-USASP2011015770

PATIENT
  Age: 21 Year
  Sex: Male
  Weight: 66 kg

DRUGS (5)
  1. EPOGEN [Suspect]
     Active Substance: ERYTHROPOIETIN
     Indication: END STAGE RENAL DISEASE
     Dosage: 15400 IU, UNK
     Route: 042
     Dates: start: 20100511
  2. IRON                               /00023503/ [Concomitant]
     Active Substance: IRON
  3. EPOGEN [Suspect]
     Active Substance: ERYTHROPOIETIN
     Dosage: 10000 IU, Q2WK
  4. EPOGEN [Suspect]
     Active Substance: ERYTHROPOIETIN
     Dosage: 4000 IU, Q2WK
  5. EPOGEN [Suspect]
     Active Substance: ERYTHROPOIETIN
     Dates: start: 201005

REACTIONS (4)
  - Tachycardia [Not Recovered/Not Resolved]
  - Dyspnoea [Not Recovered/Not Resolved]
  - Blood iron decreased [Unknown]
  - Drug ineffective [Not Recovered/Not Resolved]

NARRATIVE: CASE EVENT DATE: 20100511
